FAERS Safety Report 19505564 (Version 1)
Quarter: 2021Q3

REPORT INFORMATION
  Report Type: Spontaneous
  Country: US (occurrence: US)
  Receive Date: 20210707
  Receipt Date: 20210707
  Transmission Date: 20211014
  Serious: Yes (Other)
  Sender: FDA-Public Use
  Company Number: None

PATIENT
  Sex: Female

DRUGS (2)
  1. OCELLA [Suspect]
     Active Substance: DROSPIRENONE\ETHINYL ESTRADIOL
  2. LORYNA [Suspect]
     Active Substance: DROSPIRENONE\ETHINYL ESTRADIOL

REACTIONS (3)
  - Acne [None]
  - Nausea [None]
  - Headache [None]
